FAERS Safety Report 14825394 (Version 1)
Quarter: 2018Q2

REPORT INFORMATION
  Report Type: Spontaneous
  Country: US (occurrence: US)
  Receive Date: 20180430
  Receipt Date: 20180430
  Transmission Date: 20180711
  Serious: No
  Sender: FDA-Public Use
  Company Number: US-TEVA-2018-US-886921

PATIENT
  Age: 80 Year
  Sex: Male
  Weight: 75.28 kg

DRUGS (1)
  1. FEXOFENADINE [Suspect]
     Active Substance: FEXOFENADINE\FEXOFENADINE HYDROCHLORIDE
     Indication: UPPER-AIRWAY COUGH SYNDROME
     Dosage: 180 MG, SINGLE
     Route: 048
     Dates: start: 20180420, end: 20180420

REACTIONS (1)
  - Off label use [Unknown]

NARRATIVE: CASE EVENT DATE: 20180420
